FAERS Safety Report 5159591-8 (Version None)
Quarter: 2006Q4

REPORT INFORMATION
  Report Type: 
  Country: None (occurrence: None)
  Receive Date: 20061129
  Receipt Date: 20061122
  Transmission Date: 20070319
  Serious: Yes (Hospitalization)
  Sender: FDA-Public Use
  Company Number: BR-AVENTIS-200622012GDDC

PATIENT
  Age: 13 Year
  Sex: Female
  Weight: 59 kg

DRUGS (2)
  1. ALLEGRA-D 12 HOUR [Suspect]
     Indication: RHINITIS
     Route: 048
     Dates: start: 20061111, end: 20061115
  2. SINGULAIR [Concomitant]
     Indication: PROPHYLAXIS
     Route: 048

REACTIONS (2)
  - CONVULSION [None]
  - EPISTAXIS [None]
